FAERS Safety Report 8034217-4 (Version None)
Quarter: 2012Q1

REPORT INFORMATION
  Report Type: 
  Country: None (occurrence: None)
  Receive Date: 20120110
  Receipt Date: 20120106
  Transmission Date: 20120608
  Serious: Yes (Death, Hospitalization)
  Sender: FDA-Public Use
  Company Number: CA-ROCHE-1023831

PATIENT
  Age: 45 Year
  Sex: Male
  Weight: 79.9 kg

DRUGS (1)
  1. VEMURAFENIB [Suspect]
     Indication: MALIGNANT MELANOMA

REACTIONS (2)
  - DEATH [None]
  - DIVERTICULAR PERFORATION [None]
